FAERS Safety Report 16755471 (Version 1)
Quarter: 2019Q3

REPORT INFORMATION
  Report Type: Spontaneous
  Country: None (occurrence: CA)
  Receive Date: 20190829
  Receipt Date: 20190829
  Transmission Date: 20191005
  Serious: Yes (Death)
  Sender: FDA-Public Use
  Company Number: CA-MERZ NORTH AMERICA, INC.-19MRZ-00339

PATIENT
  Sex: Female

DRUGS (3)
  1. XEOMIN [Suspect]
     Active Substance: INCOBOTULINUMTOXINA
     Indication: MUSCLE SPASMS
  2. XEOMIN [Suspect]
     Active Substance: INCOBOTULINUMTOXINA
     Indication: BACK PAIN
  3. XEOMIN [Suspect]
     Active Substance: INCOBOTULINUMTOXINA
     Indication: NECK PAIN
     Dosage: UNKNOWN
     Route: 030

REACTIONS (9)
  - Loss of consciousness [Fatal]
  - Anxiety [Fatal]
  - Dizziness [Fatal]
  - Hemiparesis [Fatal]
  - Ventricular fibrillation [Fatal]
  - Off label use [Unknown]
  - Cardio-respiratory arrest [Fatal]
  - Anaphylactic reaction [Fatal]
  - Seizure [Fatal]
